FAERS Safety Report 6101483-1 (Version None)
Quarter: 2009Q1

REPORT INFORMATION
  Report Type: 
  Country: None (occurrence: None)
  Receive Date: 20090303
  Receipt Date: 20090303
  Transmission Date: 20090719
  Serious: Yes (Other)
  Sender: FDA-Public Use
  Company Number: None

PATIENT
  Age: 48 Year
  Sex: Male
  Weight: 73.9363 kg

DRUGS (2)
  1. LIPITOR [Suspect]
     Indication: HYPERCHOLESTEROLAEMIA
     Dosage: 10MG ONCE PER DAY BUCCAL
     Route: 002
     Dates: start: 19970929, end: 20070524
  2. STATINS [Concomitant]

REACTIONS (20)
  - AMNESIA [None]
  - CHRONIC SINUSITIS [None]
  - DISTURBANCE IN ATTENTION [None]
  - DIZZINESS [None]
  - FATIGUE [None]
  - HEPATIC PAIN [None]
  - HYPERHIDROSIS [None]
  - HYPERSENSITIVITY [None]
  - INSOMNIA [None]
  - LIBIDO DECREASED [None]
  - MUSCLE SPASMS [None]
  - MUSCULOSKELETAL STIFFNESS [None]
  - NAUSEA [None]
  - NECK PAIN [None]
  - NO THERAPEUTIC RESPONSE [None]
  - ORGASM ABNORMAL [None]
  - PRESYNCOPE [None]
  - SEXUAL DYSFUNCTION [None]
  - VERTIGO [None]
  - VOMITING [None]
